FAERS Safety Report 14132287 (Version 2)
Quarter: 2017Q4

REPORT INFORMATION
  Report Type: Spontaneous
  Country: US (occurrence: US)
  Receive Date: 20171027
  Receipt Date: 20171122
  Transmission Date: 20180321
  Serious: Yes (Other)
  Sender: FDA-Public Use
  Company Number: US-ROCHE-2013296

PATIENT
  Age: 72 Year
  Weight: 74.1 kg

DRUGS (3)
  1. RITUXAN [Suspect]
     Active Substance: RITUXIMAB
     Indication: CHRONIC LYMPHOCYTIC LEUKAEMIA
     Dosage: TOTAL CYCLES RECIEVED BY TIME OF EVENT ONSET:6
     Route: 042
     Dates: start: 20130409, end: 20130918
  2. CYTOXAN [Concomitant]
     Active Substance: CYCLOPHOSPHAMIDE
     Indication: CHRONIC LYMPHOCYTIC LEUKAEMIA
     Dosage: TOTAL CYCLES RECIEVED BY TIME OF EVENT ONSET:6
     Route: 042
     Dates: start: 20130409, end: 20130918
  3. FLUDARABINE [Concomitant]
     Active Substance: FLUDARABINE PHOSPHATE
     Indication: CHRONIC LYMPHOCYTIC LEUKAEMIA
     Dosage: Q 3 WEEKS?DOSE: 47 UNIT NOT REPORTED?TOTAL CYCLES RECIEVED BY TIME OF EVENT ONSET:6
     Route: 042
     Dates: start: 20130409, end: 20130918

REACTIONS (1)
  - Prostate cancer [Unknown]

NARRATIVE: CASE EVENT DATE: 20170726
